FAERS Safety Report 5327414-X (Version None)
Quarter: 2007Q2

REPORT INFORMATION
  Report Type: 
  Country: None (occurrence: None)
  Receive Date: 20070517
  Receipt Date: 20070507
  Transmission Date: 20071010
  Serious: Yes (Disabling)
  Sender: FDA-Public Use
  Company Number: JP-ASTRAZENECA-2004AP05715

PATIENT
  Age: 15373 Day
  Sex: Female

DRUGS (23)
  1. ANAPEINE [Suspect]
     Indication: EPIDURAL ANAESTHESIA
     Dosage: DURING OPERATION
     Route: 008
     Dates: start: 20041029, end: 20041029
  2. ANAPEINE [Suspect]
     Dosage: POSTOPERATIVELY
     Route: 008
     Dates: start: 20041029, end: 20041029
  3. ANAPEINE [Suspect]
     Dosage: POSTOPERATIVELY
     Route: 008
     Dates: start: 20041030
  4. ANAPEINE [Suspect]
     Route: 008
     Dates: start: 20041030
  5. ANAPEINE [Suspect]
     Dosage: 3 BOLUS DOSES
     Route: 008
     Dates: start: 20041031
  6. ANAPEINE [Suspect]
     Route: 008
     Dates: start: 20041031, end: 20041102
  7. CARBOCAIN [Suspect]
     Indication: EPIDURAL ANAESTHESIA
     Dosage: TEST DOSE
     Route: 008
     Dates: start: 20041029, end: 20041029
  8. CARBOCAIN [Suspect]
     Route: 008
     Dates: start: 20041029, end: 20041029
  9. MORPHINE [Concomitant]
     Indication: PAIN
     Dosage: DURING OPERATION
     Route: 008
     Dates: start: 20041029, end: 20041029
  10. MORPHINE [Concomitant]
     Dosage: POSTOPERATIVE: ANAPEINE 2MG/ML 200ML AND MORPHINE 5MG/200ML WERE GIVEN CONTINUOUSLY 8ML/HR
     Route: 008
     Dates: start: 20041029, end: 20041029
  11. MORPHINE [Concomitant]
     Dosage: POSTOPERATIVE: DOSING SPEED OF EPIDURAL DECREASED TO 4ML/HR.
     Route: 008
     Dates: start: 20041030
  12. MORPHINE [Concomitant]
     Route: 008
     Dates: start: 20041030
  13. ISOFLURANE [Concomitant]
     Indication: GENERAL ANAESTHESIA
     Route: 055
     Dates: start: 20041029, end: 20041029
  14. DIPRIVAN [Concomitant]
     Indication: GENERAL ANAESTHESIA
     Route: 042
     Dates: start: 20041029, end: 20041029
  15. SUCCINYLCHOLINE CHLORIDE [Concomitant]
     Route: 042
     Dates: start: 20041029, end: 20041029
  16. MIOBLOCK [Concomitant]
     Route: 042
     Dates: start: 20041029, end: 20041029
  17. MUSCULAX [Concomitant]
     Route: 042
     Dates: start: 20041029, end: 20041029
  18. EPHEDRIN [Concomitant]
     Route: 042
     Dates: start: 20041029, end: 20041029
  19. ATROPINE SULFATE [Concomitant]
     Route: 042
     Dates: start: 20041029, end: 20041029
  20. VAGOSTIGMIN [Concomitant]
     Route: 042
     Dates: start: 20041029, end: 20041029
  21. PANSPORIN [Concomitant]
     Indication: INFECTION PROPHYLAXIS
     Route: 042
     Dates: start: 20041029, end: 20041101
  22. LAUGHING GAS [Concomitant]
     Indication: ANAESTHESIA
     Route: 055
     Dates: start: 20041029, end: 20041029
  23. OXYGEN [Concomitant]
     Indication: ANAESTHESIA
     Route: 055
     Dates: start: 20041029, end: 20041029

REACTIONS (1)
  - NERVE INJURY [None]
